FAERS Safety Report 9372983 (Version 1)
Quarter: 2013Q2

REPORT INFORMATION
  Report Type: Other
  Country: DK (occurrence: KR)
  Receive Date: 20130627
  Receipt Date: 20130627
  Transmission Date: 20140414
  Serious: Yes (Hospitalization)
  Sender: FDA-Public Use
  Company Number: KR-FRI-1000046210

PATIENT
  Age: 47 Year
  Sex: Male

DRUGS (1)
  1. ESCITALOPRAM [Suspect]
     Indication: MAJOR DEPRESSION
     Dosage: 5 MG

REACTIONS (5)
  - Hyponatraemia [Unknown]
  - Convulsion [Unknown]
  - Altered state of consciousness [Unknown]
  - Respiration abnormal [Unknown]
  - Coma [Unknown]
